FAERS Safety Report 8027608-9 (Version None)
Quarter: 2011Q4

REPORT INFORMATION
  Report Type: 
  Country: None (occurrence: None)
  Receive Date: 20111130
  Receipt Date: 20110620
  Transmission Date: 20120403
  Serious: Yes (Hospitalization, Other)
  Sender: FDA-Public Use
  Company Number: US200903002756

PATIENT
  Age: 49 Year
  Sex: Male
  Weight: 91.2 kg

DRUGS (19)
  1. BYETTA [Suspect]
     Indication: TYPE 2 DIABETES MELLITUS
     Dosage: 5 UG, 2/D, SUBCUTANEOUS 10 UG, 2/D, SUBCUTANEOUS
     Route: 058
     Dates: end: 20081218
  2. BYETTA [Suspect]
     Indication: TYPE 2 DIABETES MELLITUS
     Dosage: 5 UG, 2/D, SUBCUTANEOUS 10 UG, 2/D, SUBCUTANEOUS
     Route: 058
     Dates: start: 20060613
  3. ALTACE [Concomitant]
  4. NITROLINGUAL-PUMPSPRAY (GLYCERYL TRINITRATE) SPRAY [Concomitant]
  5. PROMETHEGAN (PROMETHAZINE) SUPPOSITORY [Concomitant]
  6. METFORMIN (METFORMIN) TABLET [Concomitant]
  7. TRAMADOL HCL [Concomitant]
  8. EXENATIDE 5MCG PEN, DISPOSABLE DEVICE (EXENATIDE PEN (5MCG)) PEN, DISP [Concomitant]
  9. METFORMIN (METFORMIN) TABLET [Concomitant]
  10. ALPRAZOLAM [Concomitant]
  11. EXENATIDE 10MCG PEN, DISPOSABLE DEVICE (EXENATIDE PEN (10MCG)) PEN,DIS [Concomitant]
  12. LIPITOR [Concomitant]
  13. SULFAMETHOXAZOLE AND TRIMETHOPRIM [Concomitant]
  14. LOVASTATIN (LOVASTATIN) TABLET [Concomitant]
  15. HUMALOG MIX /01293501/ (INSULIN LISPRO) [Concomitant]
  16. HUMALOG MIX /01293501/ (INSULIN LISPRO) [Concomitant]
  17. HYDROCODONE W/APAP (HYDROCODONE, PARACETAMOL) TABLET [Concomitant]
  18. TRAZODONE HCL [Concomitant]
  19. SIMVASTATIN [Concomitant]

REACTIONS (3)
  - RENAL INJURY [None]
  - PANCREATITIS ACUTE [None]
  - OFF LABEL USE [None]
